FAERS Safety Report 16913507 (Version 1)
Quarter: 2019Q4

REPORT INFORMATION
  Report Type: Spontaneous
  Country: US (occurrence: US)
  Receive Date: 20190821
  Receipt Date: 20190821
  Transmission Date: 20200122
  Serious: No
  Sender: FDA-Public Use
  Company Number: None

PATIENT
  Age: 40 Year
  Sex: Male

DRUGS (1)
  1. TRUVADA [Suspect]
     Active Substance: EMTRICITABINE\TENOFOVIR DISOPROXIL FUMARATE
     Dosage: ?          OTHER DOSE:200-300 MG;?
     Route: 048
     Dates: start: 201811

REACTIONS (3)
  - Insurance issue [None]
  - Economic problem [None]
  - Product dose omission [None]

NARRATIVE: CASE EVENT DATE: 20190821
